FAERS Safety Report 5764779-9 (Version None)
Quarter: 2008Q2

REPORT INFORMATION
  Report Type: 
  Country: None (occurrence: None)
  Receive Date: 20080605
  Receipt Date: 20080523
  Transmission Date: 20081010
  Serious: Yes (Hospitalization)
  Sender: FDA-Public Use
  Company Number: 2008BI009464

PATIENT
  Age: 60 Year
  Sex: Female

DRUGS (1)
  1. AVONEX [Suspect]
     Indication: MULTIPLE SCLEROSIS
     Dosage: 30 UG; QW; IM
     Route: 030
     Dates: start: 20040901

REACTIONS (5)
  - DIARRHOEA [None]
  - FULL BLOOD COUNT DECREASED [None]
  - GASTRITIS [None]
  - IRON DEFICIENCY ANAEMIA [None]
  - VIRAL INFECTION [None]
